FAERS Safety Report 8161340-6 (Version None)
Quarter: 2012Q1

REPORT INFORMATION
  Report Type: 
  Country: None (occurrence: None)
  Receive Date: 20120224
  Receipt Date: 20120214
  Transmission Date: 20120608
  Serious: Yes (Other)
  Sender: FDA-Public Use
  Company Number: DE-JNJFOC-20120208325

PATIENT
  Sex: Female
  Weight: 75 kg

DRUGS (7)
  1. DIPYRONE TAB [Concomitant]
     Dates: start: 20120208
  2. XARELTO [Suspect]
     Indication: HIP ARTHROPLASTY
     Route: 048
     Dates: start: 20120126, end: 20120214
  3. DREISAFER [Concomitant]
     Dates: start: 20120126
  4. VOLTAREN [Concomitant]
     Dates: start: 20120126
  5. PANTOPRAZOLE [Concomitant]
     Dates: start: 20120126
  6. LEVOTHYROXINE SODIUM [Concomitant]
  7. XARELTO [Suspect]
     Indication: THROMBOSIS PROPHYLAXIS
     Route: 048
     Dates: start: 20120126, end: 20120214

REACTIONS (1)
  - VENOUS THROMBOSIS LIMB [None]
